FAERS Safety Report 6603396-5 (Version None)
Quarter: 2010Q1

REPORT INFORMATION
  Report Type: 
  Country: None (occurrence: None)
  Receive Date: 20100226
  Receipt Date: 20090413
  Transmission Date: 20100710
  Serious: No
  Sender: FDA-Public Use
  Company Number: A0778447A

PATIENT
  Age: 59 Year
  Sex: Female

DRUGS (3)
  1. VALTREX [Suspect]
     Dosage: 1G THREE TIMES PER DAY
     Route: 048
     Dates: start: 20090409, end: 20090412
  2. PERCOCET [Concomitant]
  3. ADVIL [Concomitant]

REACTIONS (2)
  - HEADACHE [None]
  - INSOMNIA [None]
